FAERS Safety Report 21025859 (Version 1)
Quarter: 2022Q2

REPORT INFORMATION
  Report Type: Spontaneous
  Country: US (occurrence: US)
  Receive Date: 20220630
  Receipt Date: 20220630
  Transmission Date: 20220720
  Serious: No
  Sender: FDA-Public Use
  Company Number: US-SA-SAC20220628000825

PATIENT
  Sex: Female

DRUGS (32)
  1. DUPIXENT [Suspect]
     Active Substance: DUPILUMAB
     Indication: Asthma
     Dosage: 2 ML, QOW
     Route: 058
  2. LEVALBUTEROL TARTRATE [Concomitant]
     Active Substance: LEVALBUTEROL TARTRATE
  3. NAMENDA [Concomitant]
     Active Substance: MEMANTINE HYDROCHLORIDE
  4. CLINDAMYCIN [Concomitant]
     Active Substance: CLINDAMYCIN
  5. METFORMIN HYDROCHLORIDE [Concomitant]
     Active Substance: METFORMIN HYDROCHLORIDE
  6. SYNTHROID [Concomitant]
     Active Substance: LEVOTHYROXINE SODIUM
  7. REMERON [Concomitant]
     Active Substance: MIRTAZAPINE
  8. IRBESARTAN [Concomitant]
     Active Substance: IRBESARTAN
  9. DOXAZOSIN MESYLATE [Concomitant]
     Active Substance: DOXAZOSIN MESYLATE
  10. BIAXIN [Concomitant]
     Active Substance: CLARITHROMYCIN
  11. VITAMIN D3 [Concomitant]
     Active Substance: CHOLECALCIFEROL
  12. ACETAMINOPHEN\CHLORZOXAZONE [Concomitant]
     Active Substance: ACETAMINOPHEN\CHLORZOXAZONE
  13. XOPENEX [Concomitant]
     Active Substance: LEVALBUTEROL HYDROCHLORIDE
  14. SINGULAIR [Concomitant]
     Active Substance: MONTELUKAST SODIUM
  15. TRIGLIDE [Concomitant]
     Active Substance: FENOFIBRATE
  16. NABUMETONE [Concomitant]
     Active Substance: NABUMETONE
  17. CLARITHROMYCIN [Concomitant]
     Active Substance: CLARITHROMYCIN
  18. COZAAR [Concomitant]
     Active Substance: LOSARTAN POTASSIUM
  19. FISH OIL\OMEGA-3 FATTY ACIDS [Concomitant]
     Active Substance: FISH OIL\OMEGA-3 FATTY ACIDS
     Dosage: UNK, 1, 000 MG SFTG,
  20. DYMISTA [Concomitant]
     Active Substance: AZELASTINE HYDROCHLORIDE\FLUTICASONE PROPIONATE
     Dosage: UNK, 137-50 MCG
  21. BESIVANCE [Concomitant]
     Active Substance: BESIFLOXACIN
  22. LEVEMIR [Concomitant]
     Active Substance: INSULIN DETEMIR
     Dosage: UNK, 100 UNITS/ML VIAL
  23. LAMICTAL [Concomitant]
     Active Substance: LAMOTRIGINE
  24. SEROQUEL [Concomitant]
     Active Substance: QUETIAPINE FUMARATE
  25. NOVOLOG [Concomitant]
     Active Substance: INSULIN ASPART
     Dosage: UNK,100 UNIT/ML VIAL
  26. NEURONTIN [Concomitant]
     Active Substance: GABAPENTIN
  27. ZYRTEC [Concomitant]
     Active Substance: CETIRIZINE HYDROCHLORIDE
  28. BENADRYL [Concomitant]
     Active Substance: DIPHENHYDRAMINE HYDROCHLORIDE
  29. POTASSIUM CHLORIDE [Concomitant]
     Active Substance: POTASSIUM CHLORIDE
  30. SYMBICORT [Concomitant]
     Active Substance: BUDESONIDE\FORMOTEROL FUMARATE DIHYDRATE
     Dosage: UNK, 160-4.5 MCG INHALER
  31. ESOMEPRAZOLE MAGNESIUM [Concomitant]
     Active Substance: ESOMEPRAZOLE MAGNESIUM
  32. ACETYLCYSTEINE [Concomitant]
     Active Substance: ACETYLCYSTEINE

REACTIONS (1)
  - Furuncle [Unknown]
